FAERS Safety Report 21142369 (Version 1)
Quarter: 2022Q3

REPORT INFORMATION
  Report Type: Spontaneous
  Country: CN (occurrence: CN)
  Receive Date: 20220728
  Receipt Date: 20220728
  Transmission Date: 20221027
  Serious: Yes (Hospitalization)
  Sender: FDA-Public Use
  Company Number: CN-PFIZER INC-202201002139

PATIENT
  Age: 66 Year
  Sex: Male

DRUGS (7)
  1. METHOTREXATE SODIUM [Suspect]
     Active Substance: METHOTREXATE SODIUM
     Dosage: 10 MG
     Route: 037
  2. METHOTREXATE SODIUM [Suspect]
     Active Substance: METHOTREXATE SODIUM
     Dosage: 2 G
     Route: 037
     Dates: start: 20200427
  3. CYTARABINE [Concomitant]
     Active Substance: CYTARABINE
     Dosage: 50 MG
     Route: 037
  4. DEXAMETHASONE [Concomitant]
     Active Substance: DEXAMETHASONE
     Dosage: 5 MG
     Route: 037
  5. MABTHERA [Concomitant]
     Active Substance: RITUXIMAB
     Indication: Chemotherapy
     Dosage: 600 MG, ON THE FIRST DAY
     Route: 041
  6. IBRUTINIB [Concomitant]
     Active Substance: IBRUTINIB
     Indication: Chemotherapy
     Dosage: 420 MG, 1X/DAY
     Route: 048
     Dates: start: 2019
  7. LEUCOVORIN CALCIUM [Concomitant]
     Active Substance: LEUCOVORIN CALCIUM
     Indication: Symptomatic treatment
     Dosage: UNK
     Route: 030
     Dates: start: 20200427

REACTIONS (2)
  - Spinal cord disorder [Recovering/Resolving]
  - Off label use [Unknown]
